FAERS Safety Report 19897406 (Version 1)
Quarter: 2021Q3

REPORT INFORMATION
  Report Type: Spontaneous
  Country: US (occurrence: US)
  Receive Date: 20210930
  Receipt Date: 20210930
  Transmission Date: 20211014
  Serious: No
  Sender: FDA-Public Use
  Company Number: US-AMGEN-USASP2021147160

PATIENT
  Age: 67 Year
  Sex: Female

DRUGS (13)
  1. REPATHA [Suspect]
     Active Substance: EVOLOCUMAB
     Indication: BLOOD CHOLESTEROL INCREASED
     Dosage: UNK
     Route: 065
     Dates: start: 20210423
  2. FLONASE [Concomitant]
     Active Substance: FLUTICASONE PROPIONATE
  3. COENZYME Q10 [Concomitant]
     Active Substance: DIETARY SUPPLEMENT\UBIDECARENONE
  4. VISICLEAR [Concomitant]
  5. LEVOTHYROXINE. [Concomitant]
     Active Substance: LEVOTHYROXINE
  6. XANTHIUM [Concomitant]
  7. EYE GUARD PLUS [Concomitant]
  8. OMEPRAZOLE. [Concomitant]
     Active Substance: OMEPRAZOLE
  9. VITAMIN B6 [Concomitant]
     Active Substance: PYRIDOXINE HYDROCHLORIDE
  10. ZINC. [Concomitant]
     Active Substance: ZINC
  11. LUTEIN [Concomitant]
     Active Substance: LUTEIN
  12. BABY ASPIRIN [Concomitant]
     Active Substance: ASPIRIN
  13. LISINOPRIL + HIDROCLOROTIAZIDA [Concomitant]
     Active Substance: HYDROCHLOROTHIAZIDE\LISINOPRIL

REACTIONS (4)
  - Dry eye [Recovered/Resolved]
  - Ocular hyperaemia [Recovering/Resolving]
  - Vision blurred [Not Recovered/Not Resolved]
  - Foreign body sensation in eyes [Recovered/Resolved]

NARRATIVE: CASE EVENT DATE: 20210814
